FAERS Safety Report 19221628 (Version 2)
Quarter: 2022Q1

REPORT INFORMATION
  Report Type: Spontaneous
  Country: US (occurrence: US)
  Receive Date: 20210505
  Receipt Date: 20220121
  Transmission Date: 20220424
  Serious: Yes (Other)
  Sender: FDA-Public Use
  Company Number: US-PFIZER INC-2021395523

PATIENT
  Age: 67 Year
  Sex: Female
  Weight: 93.89 kg

DRUGS (3)
  1. XELJANZ XR [Suspect]
     Active Substance: TOFACITINIB CITRATE
     Indication: Rheumatoid arthritis
     Dosage: 11 MG, 1X/DAY
     Route: 048
  2. XELJANZ XR [Suspect]
     Active Substance: TOFACITINIB CITRATE
     Indication: Connective tissue disorder
  3. RINVOQ [Concomitant]
     Active Substance: UPADACITINIB
     Dosage: UNK

REACTIONS (8)
  - Meniscus operation [Unknown]
  - Elbow operation [Unknown]
  - Knee arthroplasty [Unknown]
  - Tremor [Unknown]
  - Drug ineffective [Unknown]
  - Hair growth abnormal [Unknown]
  - Therapeutic response unexpected [Unknown]
  - Bursitis [Unknown]

NARRATIVE: CASE EVENT DATE: 20210101
